FAERS Safety Report 6196956-X (Version None)
Quarter: 2009Q2

REPORT INFORMATION
  Report Type: 
  Country: None (occurrence: None)
  Receive Date: 20090520
  Receipt Date: 20090518
  Transmission Date: 20091009
  Serious: Yes (Other)
  Sender: FDA-Public Use
  Company Number: NL-WYE-G03693909

PATIENT
  Age: 17 Year

DRUGS (2)
  1. EFFEXOR XR [Suspect]
     Indication: ANXIETY DISORDER
     Dates: start: 20090301
  2. EFFEXOR XR [Suspect]
     Indication: PANIC DISORDER

REACTIONS (1)
  - DELIRIUM [None]
